FAERS Safety Report 18284186 (Version 1)
Quarter: 2020Q3

REPORT INFORMATION
  Report Type: Spontaneous
  Country: US (occurrence: US)
  Receive Date: 20200918
  Receipt Date: 20200918
  Transmission Date: 20201103
  Serious: No
  Sender: FDA-Public Use
  Company Number: US-ASTRAZENECA-2020SF16575

PATIENT
  Sex: Male
  Weight: 111.1 kg

DRUGS (1)
  1. BYDUREON [Suspect]
     Active Substance: EXENATIDE
     Indication: WEIGHT ABNORMAL
     Route: 065

REACTIONS (6)
  - Incorrect dose administered by device [Unknown]
  - Off label use [Not Recovered/Not Resolved]
  - Blood glucose decreased [Unknown]
  - Device defective [Unknown]
  - Product dose omission issue [Unknown]
  - Intentional device misuse [Not Recovered/Not Resolved]
